FAERS Safety Report 25888550 (Version 1)
Quarter: 2025Q4

REPORT INFORMATION
  Report Type: Spontaneous
  Country: RS (occurrence: RS)
  Receive Date: 20251007
  Receipt Date: 20251007
  Transmission Date: 20260118
  Serious: Yes (Other)
  Sender: CURRAX PHARMACEUTICALS
  Company Number: RS-BAUSCH-BH-2025-018106

PATIENT
  Age: 72 Year
  Sex: Female

DRUGS (5)
  1. BUPROPION HYDROCHLORIDE\NALTREXONE HYDROCHLORIDE [Suspect]
     Active Substance: BUPROPION HYDROCHLORIDE\NALTREXONE HYDROCHLORIDE
     Indication: Product used for unknown indication
     Dosage: STRENGTH: 90/8 MG, 1.0 DOSAGE FORM (1 DOSAGE FORM, 1 IN 1 DAY)
     Route: 065
     Dates: start: 20250721, end: 202507
  2. BUPROPION HYDROCHLORIDE\NALTREXONE HYDROCHLORIDE [Suspect]
     Active Substance: BUPROPION HYDROCHLORIDE\NALTREXONE HYDROCHLORIDE
     Dosage: STRENGTH: 90/8 MG, 2.0 DOSAGE FORM (1 DOSAGE FORM, 1 IN 12 HOUR)
     Route: 065
     Dates: start: 202507, end: 202508
  3. BUPROPION HYDROCHLORIDE\NALTREXONE HYDROCHLORIDE [Suspect]
     Active Substance: BUPROPION HYDROCHLORIDE\NALTREXONE HYDROCHLORIDE
     Dosage: STRENGTH: 90/8 MG, 3 DOSAGE FORM (1 IN 12 HOUR)
     Route: 065
     Dates: start: 202508, end: 202508
  4. BUPROPION HYDROCHLORIDE\NALTREXONE HYDROCHLORIDE [Suspect]
     Active Substance: BUPROPION HYDROCHLORIDE\NALTREXONE HYDROCHLORIDE
     Dosage: STRENGTH: 90/8 MG, 4.0 DOSAGE FORM (2 DOSAGE FORM, 1 IN 12 HOUR)
     Route: 065
     Dates: start: 202508, end: 202508
  5. BUPROPION HYDROCHLORIDE\NALTREXONE HYDROCHLORIDE [Suspect]
     Active Substance: BUPROPION HYDROCHLORIDE\NALTREXONE HYDROCHLORIDE
     Dosage: STRENGTH: 90/8 MG
     Route: 065
     Dates: start: 2025, end: 2025

REACTIONS (5)
  - Colitis [Unknown]
  - Accident [Unknown]
  - Joint injury [Unknown]
  - Diarrhoea [Unknown]
  - Intentional product use issue [Unknown]

NARRATIVE: CASE EVENT DATE: 20250101
